FAERS Safety Report 16257264 (Version 3)
Quarter: 2019Q2

REPORT INFORMATION
  Report Type: Report from Study
  Country: TR (occurrence: TR)
  Receive Date: 20190430
  Receipt Date: 20190513
  Transmission Date: 20190711
  Serious: Yes (Hospitalization)
  Sender: FDA-Public Use
  Company Number: TR-ROCHE-2308242

PATIENT
  Age: 68 Year
  Sex: Male
  Weight: 81 kg

DRUGS (4)
  1. ATEZOLIZUMAB. [Suspect]
     Active Substance: ATEZOLIZUMAB
     Indication: METASTATIC NEOPLASM
     Dosage: START TIME OF MOST RECENT DOSE OF ATEZOLIZUMAB PRIOR TO AE ONSET AT 09.00?DATE OF MOST RECENT DOSE O
     Route: 041
     Dates: start: 20190228
  2. ACETYLSALICYLIC ACID [Concomitant]
     Active Substance: ASPIRIN
     Indication: ARTERIOSCLEROSIS CORONARY ARTERY
     Route: 065
     Dates: start: 2009
  3. METOPROLOL SUCCINATE. [Concomitant]
     Active Substance: METOPROLOL SUCCINATE
     Indication: ARTERIOSCLEROSIS CORONARY ARTERY
     Route: 065
     Dates: start: 2014
  4. RO6874281 (FAP IL2V MAB) [Suspect]
     Active Substance: RO-6874281
     Indication: METASTATIC NEOPLASM
     Dosage: 20/MAR/2019 AT 11.20: DATE OF MOST RECENT DOSE OF RO6874281 PRIOR TO AE ONSET
     Route: 042
     Dates: start: 20190228

REACTIONS (1)
  - Blood creatinine increased [Recovered/Resolved]

NARRATIVE: CASE EVENT DATE: 20190321
